FAERS Safety Report 10356245 (Version 2)
Quarter: 2018Q1

REPORT INFORMATION
  Report Type: Report from Study
  Country: US (occurrence: US)
  Receive Date: 20140801
  Receipt Date: 20180326
  Transmission Date: 20180508
  Serious: Yes (Other)
  Sender: FDA-Public Use
  Company Number: US-ROCHE-1442697

PATIENT
  Age: 2 Year
  Sex: Female
  Weight: 11 kg

DRUGS (13)
  1. NUTROPIN AQ [Suspect]
     Active Substance: SOMATROPIN
     Indication: CHRONIC KIDNEY DISEASE
     Route: 058
  2. BICITRA [Concomitant]
     Active Substance: CITRIC ACID, 1-STEARYL ESTER\SODIUM CITRATE
     Dosage: IN FORMULA
     Route: 065
  3. RENVELA [Concomitant]
     Active Substance: SEVELAMER CARBONATE
     Route: 065
  4. NITROFURANTOIN. [Concomitant]
     Active Substance: NITROFURANTOIN
     Route: 065
  5. NUTROPIN AQ [Suspect]
     Active Substance: SOMATROPIN
     Route: 058
  6. POLYVISOL [Concomitant]
     Route: 065
  7. PYRIDOXINE [Concomitant]
     Active Substance: PYRIDOXINE
     Route: 065
  8. EPOGEN [Concomitant]
     Active Substance: ERYTHROPOIETIN
     Dosage: 4000 UNITS?HEMODIALYSIS MEDICATION
     Route: 065
  9. ZEMPLAR [Concomitant]
     Active Substance: PARICALCITOL
     Route: 065
  10. FOLIC ACID. [Concomitant]
     Active Substance: FOLIC ACID
     Route: 065
  11. VENOFER [Concomitant]
     Active Substance: IRON SUCROSE
     Dosage: 10 DOSES
     Route: 042
  12. MANNITOL. [Concomitant]
     Active Substance: MANNITOL
     Dosage: HEMODIALYSIS MEDICATION
     Route: 065
  13. KAYEXALATE [Concomitant]
     Active Substance: SODIUM POLYSTYRENE SULFONATE
     Dosage: 4 TEASPOONS
     Route: 065

REACTIONS (9)
  - Failure to thrive [Unknown]
  - Gastroenteritis [Unknown]
  - Arthralgia [Unknown]
  - Hyperphosphataemia [Unknown]
  - Device related infection [Unknown]
  - Bone development abnormal [Unknown]
  - Anaemia [Unknown]
  - Rickets [Unknown]
  - Acute kidney injury [Unknown]

NARRATIVE: CASE EVENT DATE: 20130717
